FAERS Safety Report 9200910 (Version 3)
Quarter: 2014Q2

REPORT INFORMATION
  Report Type: Spontaneous
  Country: US (occurrence: US)
  Receive Date: 20130401
  Receipt Date: 20140515
  Transmission Date: 20141212
  Serious: Yes (Hospitalization)
  Sender: FDA-Public Use
  Company Number: US-BAYER-2013-039561

PATIENT
  Age: 37 Year
  Sex: Female
  Weight: 78.46 kg

DRUGS (2)
  1. MIRENA [Suspect]
     Indication: CONTRACEPTION
     Dosage: 20 MCG/24HR, CONT
     Route: 015
     Dates: start: 20070913, end: 20100305
  2. FLUOXETINE [Concomitant]
     Dosage: UNK
     Dates: start: 2005, end: 2013

REACTIONS (8)
  - Uterine perforation [None]
  - Device dislocation [None]
  - Adhesiolysis [None]
  - Injury [None]
  - Pain [None]
  - Emotional distress [None]
  - Depression [None]
  - Anxiety [None]
